FAERS Safety Report 8545316 (Version 3)
Quarter: 2012Q4

REPORT INFORMATION
  Report Type: 
  Country: DK (occurrence: DK)
  Receive Date: 20120503
  Receipt Date: 20121030
  Transmission Date: 20130627
  Serious: Yes (Hospitalization)
  Sender: FDA-Public Use
  Company Number: DK-B.I. PHARMACEUTICALS,INC./RIDGEFIELD-2012-SW-00344DB

PATIENT
  Age: 76 Year
  Sex: Female
  Weight: 70 kg

DRUGS (4)
  1. PRADAXA [Suspect]
     Indication: ATRIAL FIBRILLATION
     Dosage: Pharmaceutical form: 6, Dosage text: DOSIS 150mg x 2, Strength: 150 mg
     Route: 048
     Dates: start: 20111205, end: 20120424
  2. SPIRIVA [Concomitant]
     Dosage: Pharmaceutical form: 111
  3. STILNOCT [Concomitant]
     Dosage: Pharmaceutical form: 82
  4. KALEORID [Concomitant]

REACTIONS (3)
  - Iron deficiency anaemia [Unknown]
  - Abdominal pain upper [Unknown]
  - Gastric ulcer [Unknown]
